FAERS Safety Report 6645642-8 (Version None)
Quarter: 2010Q1

REPORT INFORMATION
  Report Type: 
  Country: None (occurrence: None)
  Receive Date: 20100323
  Receipt Date: 20100311
  Transmission Date: 20100710
  Serious: Yes (Hospitalization)
  Sender: FDA-Public Use
  Company Number: PL-JNJFOC-20091203798

PATIENT
  Sex: Female
  Weight: 72 kg

DRUGS (2)
  1. USTEKINUMAB [Suspect]
     Indication: PSORIATIC ARTHROPATHY
     Route: 058
  2. USTEKINUMAB [Suspect]
     Route: 058

REACTIONS (2)
  - OFF LABEL USE [None]
  - PSEUDOMONAS INFECTION [None]
